FAERS Safety Report 13508047 (Version 1)
Quarter: 2017Q2

REPORT INFORMATION
  Report Type: Spontaneous
  Country: US (occurrence: US)
  Receive Date: 20170503
  Receipt Date: 20170503
  Transmission Date: 20170830
  Serious: Yes (Death, Hospitalization)
  Sender: FDA-Public Use
  Company Number: US-CELGENEUS-USA-2017024737

PATIENT
  Sex: Male
  Weight: 107.6 kg

DRUGS (2)
  1. VIDAZA [Suspect]
     Active Substance: AZACITIDINE
     Indication: ACUTE MYELOID LEUKAEMIA
     Dosage: 75 MILLIGRAM/SQ. METER
     Route: 041
     Dates: start: 20150511, end: 20160112
  2. SGN-CD33A (VADASTUXIMAB TALIRINE) [Suspect]
     Active Substance: VADASTUXIMAB TALIRINE
     Indication: ACUTE MYELOID LEUKAEMIA
     Dosage: 5 MICROGRAM/KILOGRAM
     Route: 041
     Dates: start: 20150219, end: 20160112

REACTIONS (4)
  - Enterocolitis [None]
  - Blood culture positive [None]
  - Sepsis [Fatal]
  - Small intestinal obstruction [None]
